FAERS Safety Report 6741825-7 (Version None)
Quarter: 2010Q2

REPORT INFORMATION
  Report Type: 
  Country: None (occurrence: None)
  Receive Date: 20100526
  Receipt Date: 20100517
  Transmission Date: 20101027
  Serious: Yes (Hospitalization)
  Sender: FDA-Public Use
  Company Number: A0774072A

PATIENT
  Age: 57 Year
  Sex: Male
  Weight: 84.1 kg

DRUGS (1)
  1. ROSIGLITAZONE MALEATE [Suspect]
     Route: 048
     Dates: start: 20010101, end: 20030402

REACTIONS (7)
  - ANXIETY [None]
  - CARDIAC FAILURE CONGESTIVE [None]
  - CARDIOMYOPATHY [None]
  - CHEST PAIN [None]
  - DEPRESSION [None]
  - PERIPHERAL VASCULAR DISORDER [None]
  - TACHYCARDIA [None]
